FAERS Safety Report 18407678 (Version 1)
Quarter: 2020Q4

REPORT INFORMATION
  Report Type: Spontaneous
  Country: US (occurrence: US)
  Receive Date: 20201021
  Receipt Date: 20201021
  Transmission Date: 20210114
  Serious: No
  Sender: FDA-Public Use
  Company Number: US-GLAXOSMITHKLINE-US2020AMR206693

PATIENT
  Sex: Male

DRUGS (1)
  1. ADVAIR DISKUS [Suspect]
     Active Substance: FLUTICASONE PROPIONATE\SALMETEROL XINAFOATE
     Indication: RESPIRATORY FAILURE
     Dosage: UNK UNK, BID
     Dates: end: 2017

REACTIONS (2)
  - Product use in unapproved indication [Unknown]
  - Lung transplant [Unknown]

NARRATIVE: CASE EVENT DATE: 2017
